FAERS Safety Report 24858008 (Version 1)
Quarter: 2025Q1

REPORT INFORMATION
  Report Type: Spontaneous
  Country: US (occurrence: US)
  Receive Date: 20250117
  Receipt Date: 20250117
  Transmission Date: 20250409
  Serious: No
  Sender: PERRIGO
  Company Number: US-PERRIGO-24US000558

PATIENT
  Age: 54 Year
  Sex: Female
  Weight: 53.515 kg

DRUGS (1)
  1. NICOTINE POLACRILEX [Suspect]
     Active Substance: NICOTINE
     Indication: Smoking cessation therapy
     Route: 002
     Dates: start: 20240101, end: 202401

REACTIONS (1)
  - Nausea [Recovered/Resolved]

NARRATIVE: CASE EVENT DATE: 20240102
